FAERS Safety Report 7769775-8 (Version None)
Quarter: 2011Q3

REPORT INFORMATION
  Report Type: 
  Country: None (occurrence: None)
  Receive Date: 20110922
  Receipt Date: 20100826
  Transmission Date: 20111222
  Serious: No
  Sender: FDA-Public Use
  Company Number: US-ASTRAZENECA-2007UW21491

PATIENT
  Age: 15988 Day
  Sex: Male
  Weight: 195 kg

DRUGS (27)
  1. SEROQUEL [Suspect]
     Indication: POST-TRAUMATIC STRESS DISORDER
     Dosage: 200 MG TO 600 MG
     Route: 048
     Dates: start: 20030101
  2. SEROQUEL [Suspect]
     Route: 048
     Dates: start: 20031013
  3. INDOMETHACIN [Concomitant]
     Dates: start: 20040428
  4. SEROQUEL [Suspect]
     Route: 048
     Dates: start: 20031013
  5. PAXIL [Concomitant]
     Dosage: 40-60 MG
     Dates: start: 20031013
  6. CLINDAMYCIN [Concomitant]
     Dates: start: 20041112
  7. ALPRAZOLAM [Concomitant]
     Dates: start: 20031013
  8. METFORMIN [Concomitant]
     Dosage: STRENGTH - 500 MG, 1000 MG
     Dates: start: 20040109
  9. PROPO-N/APAP [Concomitant]
     Dosage: STRENGTH - 100 - 650
     Dates: start: 20040608
  10. PENICILLIN VK [Concomitant]
     Dates: start: 20041119
  11. GLYBURIDE [Concomitant]
     Dosage: STRENGTH - 1.25 MG, 5 MG
     Dates: start: 20041214
  12. SEROQUEL [Suspect]
     Route: 048
     Dates: start: 20040109
  13. MOTRIN [Concomitant]
     Dates: start: 20031031
  14. NAPROXEN [Concomitant]
     Dates: start: 20040608
  15. CIPROFLOXACIN [Concomitant]
     Dates: start: 20041214
  16. HYDROCHLOROT [Concomitant]
     Dates: start: 20080303
  17. ZESTORETIC [Concomitant]
     Dates: start: 20040109
  18. ACULAR [Concomitant]
     Dates: start: 20031013
  19. AMOXICILLIN [Concomitant]
     Dates: start: 20041029
  20. PREDNISONE [Concomitant]
     Dates: start: 20080303
  21. SEROQUEL [Suspect]
     Indication: DEPRESSION
     Dosage: 200 MG TO 600 MG
     Route: 048
     Dates: start: 20030101
  22. SEROQUEL [Suspect]
     Route: 048
     Dates: start: 20040109
  23. MIRTAZAPINE [Concomitant]
     Dates: start: 20031013
  24. RANITIDINE [Concomitant]
     Dosage: STRENGTH - 300 MG, 150 MG
     Dates: start: 20031031
  25. RHINOCORT [Concomitant]
     Dates: start: 20031031
  26. LISINO/HCTZ [Concomitant]
     Dosage: STRENGTH - 20 - 25 M
     Dates: start: 20031202
  27. ALLEGRA D 24 HOUR [Concomitant]
     Dates: start: 20031016

REACTIONS (2)
  - DIABETIC COMPLICATION [None]
  - TYPE 2 DIABETES MELLITUS [None]
